FAERS Safety Report 14980775 (Version 1)
Quarter: 2018Q2

REPORT INFORMATION
  Report Type: Report from Study
  Country: US (occurrence: US)
  Receive Date: 20180606
  Receipt Date: 20180606
  Transmission Date: 20180711
  Serious: Yes (Other)
  Sender: FDA-Public Use
  Company Number: US-SHIRE-US201820933

PATIENT
  Sex: Male
  Weight: 55.65 kg

DRUGS (1)
  1. VYVANSE [Suspect]
     Active Substance: LISDEXAMFETAMINE DIMESYLATE
     Indication: ATTENTION DEFICIT/HYPERACTIVITY DISORDER
     Dosage: 30 MG, 1X/DAY:QD
     Route: 048
     Dates: start: 2017, end: 2018

REACTIONS (11)
  - Malaise [Not Recovered/Not Resolved]
  - Hyperhidrosis [Recovered/Resolved]
  - Nervousness [Not Recovered/Not Resolved]
  - Hyperthyroidism [Not Recovered/Not Resolved]
  - Skin abrasion [Not Recovered/Not Resolved]
  - Dyskinesia [Recovered/Resolved]
  - Weight decreased [Recovered/Resolved]
  - Psychomotor hyperactivity [Recovered/Resolved]
  - Seizure [Recovered/Resolved]
  - Thyroid disorder [Not Recovered/Not Resolved]
  - Feeling jittery [Recovered/Resolved]

NARRATIVE: CASE EVENT DATE: 2017
